FAERS Safety Report 15633926 (Version 3)
Quarter: 2019Q2

REPORT INFORMATION
  Report Type: Report from Study
  Country: IT (occurrence: IT)
  Receive Date: 20181119
  Receipt Date: 20190604
  Transmission Date: 20190711
  Serious: Yes (Other)
  Sender: FDA-Public Use
  Company Number: IT-PFIZER INC-2018470964

PATIENT
  Age: 80 Year
  Sex: Male

DRUGS (1)
  1. XANAX [Suspect]
     Active Substance: ALPRAZOLAM
     Dosage: 10 ML, SINGLE
     Route: 048
     Dates: start: 20180912, end: 20180912

REACTIONS (3)
  - Drug abuse [Recovering/Resolving]
  - Intentional self-injury [Unknown]
  - Psychomotor hyperactivity [Recovering/Resolving]

NARRATIVE: CASE EVENT DATE: 20180912
